FAERS Safety Report 10458560 (Version 1)
Quarter: 2014Q3

REPORT INFORMATION
  Report Type: Spontaneous
  Country: US (occurrence: None)
  Receive Date: 20140912
  Receipt Date: 20140912
  Transmission Date: 20150326
  Serious: No
  Sender: FDA-Public Use
  Company Number: C-14-106

PATIENT
  Age: 46 Year
  Sex: Male

DRUGS (20)
  1. NORVIR [Concomitant]
     Active Substance: RITONAVIR
  2. VITAMIN A [Concomitant]
     Active Substance: VITAMIN A
  3. OXYCODONE 10 MG (KVK-TECH) [Suspect]
     Active Substance: OXYCODONE
     Indication: MUSCULOSKELETAL CHEST PAIN
     Route: 048
     Dates: start: 20140806
  4. PREZISTA [Concomitant]
     Active Substance: DARUNAVIR ETHANOLATE
  5. TRAMADOL [Concomitant]
     Active Substance: TRAMADOL
  6. ASPIRIN. [Concomitant]
     Active Substance: ASPIRIN
  7. UNKNOWN CEPHALOSPORIN [Concomitant]
     Active Substance: UNSPECIFIED INGREDIENT
  8. CRESTOR [Concomitant]
     Active Substance: ROSUVASTATIN CALCIUM
  9. LOSARTAN [Concomitant]
     Active Substance: LOSARTAN
  10. AZITHROMYCIN [Concomitant]
     Active Substance: AZITHROMYCIN ANHYDROUS
  11. ALPHA LIPIC ACID [Concomitant]
  12. TRUVADA [Concomitant]
     Active Substance: EMTRICITABINE\TENOFOVIR DISOPROXIL FUMARATE
  13. WELLBUTRIN [Concomitant]
     Active Substance: BUPROPION HYDROCHLORIDE
  14. GABAPENTIN. [Concomitant]
     Active Substance: GABAPENTIN
  15. VITAMIN B12 [Concomitant]
     Active Substance: CYANOCOBALAMIN
  16. LORAZEPAM. [Concomitant]
     Active Substance: LORAZEPAM
  17. UNKNOWN COLON CLEANSER [Concomitant]
  18. VITAMIN C [Concomitant]
     Active Substance: ASCORBIC ACID
  19. VITAMIN D [Concomitant]
     Active Substance: CHOLECALCIFEROL
  20. VITAMIN E [Concomitant]
     Active Substance: .ALPHA.-TOCOPHEROL

REACTIONS (1)
  - Drug ineffective [None]
